FAERS Safety Report 6654016-5 (Version None)
Quarter: 2010Q1

REPORT INFORMATION
  Report Type: 
  Country: None (occurrence: None)
  Receive Date: 20100326
  Receipt Date: 20100317
  Transmission Date: 20100710
  Serious: Yes (Other)
  Sender: FDA-Public Use
  Company Number: US-BAYER-201020086GPV

PATIENT
  Age: 77 Year
  Sex: Female

DRUGS (4)
  1. BENZOCAINE [Suspect]
     Indication: ECHOCARDIOGRAM
     Route: 061
  2. LIDOCAINE [Suspect]
     Indication: ECHOCARDIOGRAM
     Route: 061
  3. FENTANYL [Concomitant]
     Indication: ECHOCARDIOGRAM
     Route: 042
  4. MIDAZOLAM HCL [Concomitant]
     Indication: ECHOCARDIOGRAM
     Route: 042

REACTIONS (3)
  - CYANOSIS [None]
  - METHAEMOGLOBINAEMIA [None]
  - SOMNOLENCE [None]
